FAERS Safety Report 20465485 (Version 1)
Quarter: 2022Q1

REPORT INFORMATION
  Report Type: Spontaneous
  Country: US (occurrence: US)
  Receive Date: 20220212
  Receipt Date: 20220212
  Transmission Date: 20220423
  Serious: Yes (Other)
  Sender: FDA-Public Use
  Company Number: US-UNITED THERAPEUTICS-UNT-2021-024564

PATIENT
  Sex: Male
  Weight: 149.66 kg

DRUGS (4)
  1. REMODULIN [Suspect]
     Active Substance: TREPROSTINIL
     Indication: Pulmonary arterial hypertension
     Dosage: UNK, CONTINUING
     Route: 058
     Dates: start: 20210715
  2. REMODULIN [Suspect]
     Active Substance: TREPROSTINIL
     Dosage: 0.0308 ?G/KG, CONTINUING
     Route: 058
     Dates: start: 2021
  3. REMODULIN [Suspect]
     Active Substance: TREPROSTINIL
     Dosage: 0.055 ?G/KG, CONTINUING
     Route: 058
  4. ELIQUIS [Concomitant]
     Active Substance: APIXABAN
     Indication: Product used for unknown indication
     Dosage: UNK
     Route: 065

REACTIONS (3)
  - Pulmonary thrombosis [Unknown]
  - Blood pressure increased [Unknown]
  - Catheterisation cardiac abnormal [Unknown]

NARRATIVE: CASE EVENT DATE: 20210101
